FAERS Safety Report 7204283-4 (Version None)
Quarter: 2010Q4

REPORT INFORMATION
  Report Type: 
  Country: None (occurrence: None)
  Receive Date: 20101220
  Receipt Date: 20101209
  Transmission Date: 20110411
  Serious: Yes (Death, Hospitalization)
  Sender: FDA-Public Use
  Company Number: 023527

PATIENT
  Age: 87 Year
  Sex: Male

DRUGS (6)
  1. KEPPRA [Suspect]
     Indication: CONVULSION
     Dosage: (500 MG TID ORAL)
     Route: 048
     Dates: start: 20100604, end: 20100622
  2. FAMOTIDINE [Concomitant]
  3. ADIRO [Concomitant]
  4. CARDYL [Concomitant]
  5. COZAAR [Concomitant]
  6. FORTECONTIN 00016001/ [Concomitant]

REACTIONS (7)
  - CONFUSIONAL STATE [None]
  - DISORIENTATION [None]
  - HAEMATURIA [None]
  - INCREASED TENDENCY TO BRUISE [None]
  - MENINGIOMA [None]
  - NEUROLOGICAL DECOMPENSATION [None]
  - THROMBOCYTOPENIA [None]
